FAERS Safety Report 20878671 (Version 2)
Quarter: 2022Q2

REPORT INFORMATION
  Report Type: Spontaneous
  Country: US (occurrence: US)
  Receive Date: 20220526
  Receipt Date: 20220613
  Transmission Date: 20220721
  Serious: Yes (Hospitalization)
  Sender: FDA-Public Use
  Company Number: US-TEVA-2022-US-2039480

PATIENT
  Age: 73 Year
  Sex: Male

DRUGS (6)
  1. METHYLPREDNISOLONE [Suspect]
     Active Substance: METHYLPREDNISOLONE
     Indication: Pemphigus
     Dosage: INITIALLY DOSE WAS 96 MG, LATER TAPERED DOWN TO 24MG
     Route: 065
  2. RITUXIMAB [Suspect]
     Active Substance: RITUXIMAB
     Indication: Pemphigus
     Route: 050
  3. RITUXIMAB [Suspect]
     Active Substance: RITUXIMAB
     Dosage: FOR 3 WEEKS
     Route: 050
  4. HUMAN IMMUNOGLOBULIN G [Concomitant]
     Active Substance: HUMAN IMMUNOGLOBULIN G
     Indication: Pemphigus
     Dosage: IVIG ON THE FOURTH WEEK, FOR THE FIRST TWO MONTHS, FOLLOWED BY MONTHLY IVIG CYCLES
     Route: 042
  5. APIXABAN [Concomitant]
     Active Substance: APIXABAN
     Indication: Deep vein thrombosis
     Route: 065
  6. APIXABAN [Concomitant]
     Active Substance: APIXABAN
     Indication: Pulmonary embolism

REACTIONS (2)
  - Fatigue [Unknown]
  - Pneumocystis jirovecii pneumonia [Unknown]
